FAERS Safety Report 24013927 (Version 1)
Quarter: 2024Q2

REPORT INFORMATION
  Report Type: Spontaneous
  Country: AU (occurrence: AU)
  Receive Date: 20240626
  Receipt Date: 20240626
  Transmission Date: 20240716
  Serious: Yes (Death, Hospitalization)
  Sender: FDA-Public Use
  Company Number: AU-AMGEN-AUSSP2024123621

PATIENT
  Age: 92 Year
  Sex: Female

DRUGS (2)
  1. PROLIA [Suspect]
     Active Substance: DENOSUMAB
     Indication: Osteoporosis
     Dosage: 60 MILLIGRAM, Q6MO
     Route: 065
     Dates: start: 202402, end: 20240222
  2. CALCIUM [Concomitant]
     Active Substance: CALCIUM

REACTIONS (5)
  - End stage renal disease [Fatal]
  - Hypocalcaemia [Fatal]
  - Hypoaesthesia oral [Unknown]
  - Paraesthesia [Unknown]
  - Vomiting [Unknown]

NARRATIVE: CASE EVENT DATE: 20240312
